FAERS Safety Report 8977757 (Version 1)
Quarter: 2012Q4

REPORT INFORMATION
  Report Type: Report from Study
  Country: CA (occurrence: CA)
  Receive Date: 20121220
  Receipt Date: 20121220
  Transmission Date: 20130627
  Serious: Yes (Other)
  Sender: FDA-Public Use
  Company Number: CA-ROCHE-1171871

PATIENT
  Sex: Female
  Weight: 73.09 kg

DRUGS (7)
  1. XOLAIR [Suspect]
     Indication: ASTHMA
     Dosage: 225 mg, Q2W
     Route: 058
     Dates: start: 20080320
  2. XOLAIR [Suspect]
     Route: 058
     Dates: start: 20110607
  3. ADVAIR [Concomitant]
     Indication: PRODUCT USED FOR UNKNOWN INDICATION
  4. SINGULAIR [Concomitant]
     Indication: PRODUCT USED FOR UNKNOWN INDICATION
  5. CITALOPRAM HYDROBROMIDE [Concomitant]
  6. VENTOLIN [Concomitant]
  7. SINGULAIR [Concomitant]

REACTIONS (12)
  - Pneumonia [Recovering/Resolving]
  - Nasopharyngitis [Recovering/Resolving]
  - Middle ear effusion [Unknown]
  - Cough [Unknown]
  - Influenza [Unknown]
  - Sinusitis [Recovered/Resolved]
  - Lower respiratory tract infection [Recovering/Resolving]
  - Wheezing [Unknown]
  - Malaise [Unknown]
  - Eczema [Unknown]
  - Blood pressure increased [Unknown]
  - Cough [Unknown]
